FAERS Safety Report 9537026 (Version 1)
Quarter: 2013Q3

REPORT INFORMATION
  Report Type: Spontaneous
  Country: US (occurrence: None)
  Receive Date: 20130918
  Receipt Date: 20130918
  Transmission Date: 20140515
  Serious: Yes (Hospitalization)
  Sender: FDA-Public Use
  Company Number: None

PATIENT
  Age: 81 Year
  Sex: Female
  Weight: 63.6 kg

DRUGS (17)
  1. XARELTO [Suspect]
     Indication: HIP ARTHROPLASTY
     Route: 048
     Dates: start: 20130726, end: 20130815
  2. XARELTO [Suspect]
     Indication: THROMBOSIS PROPHYLAXIS
     Route: 048
     Dates: start: 20130726, end: 20130815
  3. DONEPEZIL [Concomitant]
  4. MEMANTINE [Concomitant]
  5. NORCO [Concomitant]
  6. TRAMADOL [Concomitant]
  7. LANTUS [Concomitant]
  8. LYRICA [Concomitant]
  9. MIRTAZIPINE [Concomitant]
  10. MELATONIN [Concomitant]
  11. OMEPRAZOLE [Concomitant]
  12. ZETIA [Concomitant]
  13. ASPIRIN [Concomitant]
  14. DIOVAN HCT [Concomitant]
  15. LEVOTHYROXINE [Concomitant]
  16. ASCORBIC ACID [Concomitant]
  17. VITAMIN E [Concomitant]

REACTIONS (2)
  - Cystitis haemorrhagic [None]
  - Anaemia [None]
